FAERS Safety Report 13717222 (Version 1)
Quarter: 2017Q3

REPORT INFORMATION
  Report Type: Spontaneous
  Country: US (occurrence: US)
  Receive Date: 20170705
  Receipt Date: 20170705
  Transmission Date: 20171127
  Serious: No
  Sender: FDA-Public Use
  Company Number: PHEH2017US019516

PATIENT
  Sex: Female
  Weight: 65.76 kg

DRUGS (8)
  1. GLUCOSAMIN [Concomitant]
     Indication: ARTHROPATHY
     Dosage: 2 DF, QD
     Route: 065
  2. FASLODEX [Concomitant]
     Active Substance: FULVESTRANT
     Indication: HORMONE LEVEL ABNORMAL
     Dosage: UNK UNK, QMO
     Route: 030
  3. IBRANCE [Concomitant]
     Active Substance: PALBOCICLIB
     Indication: BREAST CANCER METASTATIC
     Dosage: 150 MG, QD (FOR 21 DAYS AND THEN OFF FOR 7 DAYS)
     Route: 065
  4. CALCIUM [Concomitant]
     Active Substance: CALCIUM
     Indication: PRODUCT USED FOR UNKNOWN INDICATION
     Dosage: 2 DF (1200 MG), QD
     Route: 065
  5. VITAMIN D [Concomitant]
     Active Substance: CHOLECALCIFEROL
     Indication: PRODUCT USED FOR UNKNOWN INDICATION
     Dosage: 2 DF (600 IU), QD
     Route: 065
  6. IBRANCE [Concomitant]
     Active Substance: PALBOCICLIB
     Dosage: 75 MG, QD
     Route: 065
  7. FEMARA [Suspect]
     Active Substance: LETROZOLE
     Indication: BREAST CANCER METASTATIC
     Dosage: UNK
     Route: 065
  8. XGEVA [Concomitant]
     Active Substance: DENOSUMAB
     Indication: BONE DISORDER
     Dosage: UNK UNK, QMO
     Route: 065
     Dates: start: 201611

REACTIONS (1)
  - Drug ineffective [Unknown]
